FAERS Safety Report 26126337 (Version 1)
Quarter: 2025Q4

REPORT INFORMATION
  Report Type: Spontaneous
  Country: US (occurrence: US)
  Receive Date: 20251205
  Receipt Date: 20251205
  Transmission Date: 20260117
  Serious: No
  Sender: VERTEX
  Company Number: US-VERTEX PHARMACEUTICALS-2025-020129

PATIENT

DRUGS (1)
  1. SUZETRIGINE [Suspect]
     Active Substance: SUZETRIGINE
     Indication: Small fibre neuropathy
     Dosage: UNK

REACTIONS (2)
  - Off label use [Unknown]
  - Rash [Unknown]
